FAERS Safety Report 18963561 (Version 1)
Quarter: 2021Q1

REPORT INFORMATION
  Report Type: Spontaneous
  Country: US (occurrence: US)
  Receive Date: 20210303
  Receipt Date: 20210303
  Transmission Date: 20210420
  Serious: Yes (Hospitalization)
  Sender: FDA-Public Use
  Company Number: None

PATIENT
  Age: 66 Year
  Sex: Female

DRUGS (15)
  1. HUMIRA [Suspect]
     Active Substance: ADALIMUMAB
     Indication: PSORIASIS
     Dosage: ?          OTHER FREQUENCY:EVERY TWO WEEKS;?
     Route: 058
     Dates: start: 20200429
  2. ADVAIR HFA [Concomitant]
     Active Substance: FLUTICASONE PROPIONATE\SALMETEROL XINAFOATE
  3. DICLOFENAC [Concomitant]
     Active Substance: DICLOFENAC
  4. PREDNISONE. [Concomitant]
     Active Substance: PREDNISONE
  5. PHENTERMINE. [Concomitant]
     Active Substance: PHENTERMINE
  6. RESTASIS [Concomitant]
     Active Substance: CYCLOSPORINE
  7. METFORMIN [Concomitant]
     Active Substance: METFORMIN HYDROCHLORIDE
  8. TOPIRAMATE. [Concomitant]
     Active Substance: TOPIRAMATE
  9. ARMOUR THYROID [Concomitant]
     Active Substance: THYROID, PORCINE
  10. TRAMADOL. [Concomitant]
     Active Substance: TRAMADOL
  11. FOLIC ACID. [Concomitant]
     Active Substance: FOLIC ACID
  12. JUBLIA [Concomitant]
     Active Substance: EFINACONAZOLE
  13. CHLORTHALIDONE. [Concomitant]
     Active Substance: CHLORTHALIDONE
  14. ALBUTEROL. [Concomitant]
     Active Substance: ALBUTEROL
  15. IRBESARTAN. [Concomitant]
     Active Substance: IRBESARTAN

REACTIONS (4)
  - Sepsis [None]
  - Pneumonia [None]
  - Respiratory failure [None]
  - SARS-CoV-2 test positive [None]

NARRATIVE: CASE EVENT DATE: 20210203
